APPROVED DRUG PRODUCT: SUNITINIB MALATE
Active Ingredient: SUNITINIB MALATE
Strength: EQ 37.5MG BASE
Dosage Form/Route: CAPSULE;ORAL
Application: A218615 | Product #003 | TE Code: AB
Applicant: EUGIA PHARMA SPECIALITIES LTD
Approved: Mar 14, 2024 | RLD: No | RS: No | Type: RX